FAERS Safety Report 11721203 (Version 3)
Quarter: 2015Q4

REPORT INFORMATION
  Report Type: Spontaneous
  Country: CN (occurrence: CN)
  Receive Date: 20151110
  Receipt Date: 20151214
  Transmission Date: 20160304
  Serious: Yes (Hospitalization)
  Sender: FDA-Public Use
  Company Number: CN-NOVOPROD-469424

PATIENT
  Age: 59 Year
  Sex: Female
  Weight: 65 kg

DRUGS (3)
  1. NOVOMIX 30 PENFILL [Suspect]
     Active Substance: INSULIN ASPART
     Indication: TYPE 2 DIABETES MELLITUS
     Dosage: UNK
     Route: 058
  2. NOVOMIX 30 PENFILL [Suspect]
     Active Substance: INSULIN ASPART
     Dosage: 38 U, QD (22 IN THE MORNING AND 16 IN THE EVENING)
     Route: 058
     Dates: start: 20150919, end: 20151031
  3. NOVOMIX 30 PENFILL [Suspect]
     Active Substance: INSULIN ASPART
     Dosage: 48 U, QD
     Route: 058

REACTIONS (7)
  - Syncope [Recovering/Resolving]
  - Muscular weakness [Unknown]
  - Hyperglycaemia [Recovering/Resolving]
  - Condition aggravated [Unknown]
  - Diabetes mellitus inadequate control [Recovering/Resolving]
  - Product quality issue [Unknown]
  - Hyperglycaemia [Recovering/Resolving]

NARRATIVE: CASE EVENT DATE: 20151031
